FAERS Safety Report 7308648 (Version 4)
Quarter: 2012Q4

REPORT INFORMATION
  Report Type: Report from Study
  Country: US (occurrence: US)
  Receive Date: 20100308
  Receipt Date: 20121205
  Transmission Date: 20130627
  Serious: Yes (Death, Hospitalization)
  Sender: FDA-Public Use
  Company Number: PHHO2010US03553

PATIENT
  Age: 62 Year
  Sex: Female
  Weight: 58.5 kg

DRUGS (13)
  1. AFINITOR [Suspect]
     Indication: GLIOBLASTOMA MULTIFORME
     Dosage: 5 mg, QD
     Route: 048
     Dates: start: 20100224, end: 20100228
  2. AVASTIN [Suspect]
     Indication: GLIOBLASTOMA MULTIFORME
     Dosage: 10 mg/kg, UNK
     Route: 042
     Dates: start: 20090922, end: 20100223
  3. TEMOZOLOMIDE [Suspect]
     Indication: GLIOBLASTOMA MULTIFORME
     Dosage: UNK
     Dates: start: 20090922
  4. LISINOPRIL [Concomitant]
     Dosage: UNK
     Dates: start: 20100209
  5. LOVENOX [Concomitant]
     Indication: PROPHYLAXIS
     Dosage: UNK
     Dates: start: 20100216
  6. COUMADIN [Concomitant]
     Indication: PROPHYLAXIS
  7. DILANTIN [Concomitant]
  8. MEGACE [Concomitant]
  9. DECADRON [Concomitant]
  10. CALCIUM [Concomitant]
  11. FAMOTIDINE [Concomitant]
  12. ONDANSETRON [Concomitant]
  13. PROMETHAZINE [Concomitant]

REACTIONS (8)
  - Cerebral haemorrhage [Fatal]
  - Brain herniation [Fatal]
  - Subdural haematoma [Fatal]
  - Mental status changes [Fatal]
  - Headache [Fatal]
  - Unresponsive to stimuli [Fatal]
  - Pupils unequal [Fatal]
  - Glioblastoma multiforme [Fatal]
